FAERS Safety Report 23810755 (Version 1)
Quarter: 2024Q2

REPORT INFORMATION
  Report Type: Spontaneous
  Country: US (occurrence: US)
  Receive Date: 20240502
  Receipt Date: 20240502
  Transmission Date: 20240716
  Serious: Yes (Other)
  Sender: FDA-Public Use
  Company Number: US-INTRA-CELLULAR THERAPIES, INC.-2024ICT00628

PATIENT
  Sex: Male

DRUGS (1)
  1. CAPLYTA [Suspect]
     Active Substance: LUMATEPERONE
     Dosage: 42 MG, 1X/DAY
     Route: 048
     Dates: start: 2022, end: 202404

REACTIONS (11)
  - Head injury [Not Recovered/Not Resolved]
  - Craniofacial fracture [Unknown]
  - Autoimmune disorder [Not Recovered/Not Resolved]
  - Balance disorder [Not Recovered/Not Resolved]
  - COVID-19 [Unknown]
  - Product dose omission issue [Recovered/Resolved]
  - Formication [Unknown]
  - Memory impairment [Not Recovered/Not Resolved]
  - Unevaluable event [Unknown]
  - Akathisia [Unknown]
  - Gait disturbance [Not Recovered/Not Resolved]

NARRATIVE: CASE EVENT DATE: 20220101
